FAERS Safety Report 7501250-8 (Version None)
Quarter: 2011Q2

REPORT INFORMATION
  Report Type: 
  Country: None (occurrence: None)
  Receive Date: 20110524
  Receipt Date: 20110502
  Transmission Date: 20111010
  Serious: Yes (Hospitalization)
  Sender: FDA-Public Use
  Company Number: US-BAYER-201031247NA

PATIENT
  Age: 34 Year
  Sex: Female
  Weight: 85 kg

DRUGS (13)
  1. YAZ [Suspect]
     Indication: CONTRACEPTION
     Route: 048
     Dates: start: 20070501, end: 20091015
  2. ACETAMINOPHEN [Concomitant]
     Dosage: 2 TABLETS EVERY 6 HOURS AS NEEDED
     Route: 048
  3. TYLENOL REGULAR [Concomitant]
     Dosage: 2 TABLETS EVERY 6 HOURS AS NEEDED
     Route: 048
  4. ALBUTEROL [Concomitant]
     Indication: PRODUCT USED FOR UNKNOWN INDICATION
     Dosage: 1 DOSE EVERY 4 HOURS AS NEEDED
     Route: 048
     Dates: start: 20000101
  5. FLUCONAZOLE [Concomitant]
     Indication: PRODUCT USED FOR UNKNOWN INDICATION
     Route: 048
     Dates: start: 20071025, end: 20090615
  6. ALBUTEROL INHALER [Concomitant]
     Indication: ASTHMA
     Dosage: AS NEEDED
     Route: 048
     Dates: start: 20000101
  7. PAROXETINE HYDROCHLORIDE [Concomitant]
     Indication: PRODUCT USED FOR UNKNOWN INDICATION
     Route: 048
     Dates: start: 20081106
  8. CEFUROXIME AXETIL [Concomitant]
  9. CLARITHROMYCIN [Concomitant]
  10. PREDNISONE [Concomitant]
     Indication: PRODUCT USED FOR UNKNOWN INDICATION
     Route: 065
     Dates: start: 20080903
  11. NEXIUM [Concomitant]
     Indication: PRODUCT USED FOR UNKNOWN INDICATION
     Route: 065
  12. PROMETHAZINE [Concomitant]
  13. YAZ [Suspect]
     Indication: PREMENSTRUAL SYNDROME

REACTIONS (3)
  - ABDOMINAL PAIN UPPER [None]
  - BILIARY DYSKINESIA [None]
  - EMOTIONAL DISTRESS [None]
